FAERS Safety Report 26000752 (Version 1)
Quarter: 2025Q4

REPORT INFORMATION
  Report Type: Spontaneous
  Country: US (occurrence: US)
  Receive Date: 20251105
  Receipt Date: 20251105
  Transmission Date: 20260117
  Serious: Yes (Other)
  Sender: AMGEN
  Company Number: US-AMGEN-USASP2025213734

PATIENT
  Age: 47 Year
  Sex: Female

DRUGS (1)
  1. PREDNISONE [Suspect]
     Active Substance: PREDNISONE
     Indication: Oligoarthritis
     Dosage: 60 MILLIGRAM, QD
     Route: 065

REACTIONS (2)
  - Cervix carcinoma [Not Recovered/Not Resolved]
  - Off label use [Unknown]
